FAERS Safety Report 6039238-9 (Version None)
Quarter: 2009Q1

REPORT INFORMATION
  Report Type: 
  Country: None (occurrence: None)
  Receive Date: 20090115
  Receipt Date: 20090107
  Transmission Date: 20090719
  Serious: Yes (Other)
  Sender: FDA-Public Use
  Company Number: PHEH2009US00635

PATIENT
  Sex: Female

DRUGS (8)
  1. AREDIA [Suspect]
     Indication: MULTIPLE MYELOMA
     Dosage: 90 MG, QMO
     Route: 042
     Dates: start: 20010701, end: 20030701
  2. ZOMETA [Suspect]
     Indication: MULTIPLE MYELOMA
     Dosage: 4 MG, QMO
     Dates: start: 20030801, end: 20040801
  3. CHEMOTHERAPEUTICS NOS [Concomitant]
     Dosage: UNK
     Dates: start: 20010101
  4. COZAAR [Concomitant]
  5. ZOCOR [Concomitant]
  6. ELAVIL [Concomitant]
  7. ASPIRIN [Concomitant]
  8. PRILOSEC [Concomitant]

REACTIONS (1)
  - BONE DISORDER [None]
